FAERS Safety Report 5076978-2 (Version None)
Quarter: 2006Q3

REPORT INFORMATION
  Report Type: 
  Country: None (occurrence: None)
  Receive Date: 20060810
  Receipt Date: 20060731
  Transmission Date: 20061208
  Serious: Yes (Hospitalization)
  Sender: FDA-Public Use
  Company Number: SK-GLAXOSMITHKLINE-B0432668A

PATIENT
  Age: 7 Month
  Sex: Female

DRUGS (3)
  1. 10PN-PD-DIT [Suspect]
     Route: 030
     Dates: start: 20060504, end: 20060504
  2. INFANRIX HEXA [Suspect]
     Route: 030
     Dates: start: 20060504, end: 20060504
  3. ZINNAT [Suspect]
     Dosage: 125MG PER DAY
     Route: 048
     Dates: start: 20060727, end: 20060728

REACTIONS (2)
  - DERMATITIS ALLERGIC [None]
  - PYREXIA [None]
